FAERS Safety Report 5334123-X (Version None)
Quarter: 2007Q2

REPORT INFORMATION
  Report Type: 
  Country: None (occurrence: None)
  Receive Date: 20070308
  Receipt Date: 20061222
  Transmission Date: 20071010
  Serious: No
  Sender: FDA-Public Use
  Company Number: 2005-BP-11166BP

PATIENT
  Sex: Male

DRUGS (14)
  1. SPIRIVA [Suspect]
     Indication: EMPHYSEMA
     Dosage: 18 MCG (18 MCG, QD), IH
     Route: 055
     Dates: start: 20040801
  2. SPIRIVA [Suspect]
  3. BISOPROLOL FUMARATE [Concomitant]
  4. ZOCOR [Concomitant]
  5. ALTACE [Concomitant]
  6. MUCINEX [Concomitant]
  7. DIAZEPAN (DIAZEPAM) [Concomitant]
  8. PAROXETINE [Concomitant]
  9. CADEX (DOXAZOSIN MESILATE) [Concomitant]
  10. VIT-C (ASCORBIC ACID) [Concomitant]
  11. GRAPE SEED EXT (VITIS VINIFERA EXTRACT) [Concomitant]
  12. LYCOPENE (LYCOPENE) [Concomitant]
  13. CENTRUM SILVER (CENTRUM SILVER /01292501/) [Concomitant]
  14. CALCIUM WITH ^D^ (CALCIUM WITH VITAMIN D/01233101/) [Concomitant]

REACTIONS (1)
  - OXYGEN CONSUMPTION DECREASED [None]
